FAERS Safety Report 6898846-3 (Version None)
Quarter: 2010Q3

REPORT INFORMATION
  Report Type: 
  Country: None (occurrence: None)
  Receive Date: 20100802
  Receipt Date: 20071210
  Transmission Date: 20110219
  Serious: No
  Sender: FDA-Public Use
  Company Number: US-PFIZER INC-2007104640

PATIENT
  Sex: Male
  Weight: 82.2 kg

DRUGS (4)
  1. LYRICA [Suspect]
     Indication: DIABETIC NEUROPATHY
     Dates: start: 20071124
  2. INSULIN [Concomitant]
     Indication: DIABETES MELLITUS
  3. ZANTAC [Concomitant]
     Indication: GASTROOESOPHAGEAL REFLUX DISEASE
  4. ACETYLSALICYLIC ACID SRT [Concomitant]

REACTIONS (1)
  - ERECTILE DYSFUNCTION [None]
